FAERS Safety Report 21033385 (Version 2)
Quarter: 2022Q3

REPORT INFORMATION
  Report Type: Spontaneous
  Country: BR (occurrence: BR)
  Receive Date: 20220701
  Receipt Date: 20220814
  Transmission Date: 20221026
  Serious: Yes (Other)
  Sender: FDA-Public Use
  Company Number: BR-NOVARTISPH-NVSC2022BR149429

PATIENT

DRUGS (1)
  1. ZOLPIDEM TARTRATE [Suspect]
     Active Substance: ZOLPIDEM TARTRATE
     Indication: Pain
     Dosage: 1 DOSAGE FORM
     Route: 065

REACTIONS (6)
  - Haematemesis [Unknown]
  - Catarrh [Unknown]
  - Vomiting [Unknown]
  - Confusional state [Unknown]
  - Productive cough [Unknown]
  - Unintentional use for unapproved indication [Unknown]
